FAERS Safety Report 5099991-8 (Version None)
Quarter: 2006Q3

REPORT INFORMATION
  Report Type: 
  Country: None (occurrence: None)
  Receive Date: 20060906
  Receipt Date: 20060906
  Transmission Date: 20061208
  Serious: Yes (Other)
  Sender: FDA-Public Use
  Company Number: None

PATIENT
  Sex: Male
  Weight: 74.8435 kg

DRUGS (1)
  1. PROSCAR [Suspect]
     Indication: BENIGN PROSTATIC HYPERPLASIA
     Dosage: 5 MG ONCE A DAY PO
     Route: 048
     Dates: start: 19960101, end: 20060905

REACTIONS (3)
  - ADVERSE DRUG REACTION [None]
  - ARTHRALGIA [None]
  - MUSCLE ATROPHY [None]
